FAERS Safety Report 6388201-7 (Version None)
Quarter: 2009Q4

REPORT INFORMATION
  Report Type: 
  Country: None (occurrence: None)
  Receive Date: 20091005
  Receipt Date: 20090831
  Transmission Date: 20100525
  Serious: No
  Sender: FDA-Public Use
  Company Number: US-BAYER-200914195BCC

PATIENT
  Age: 16 Year
  Sex: Female

DRUGS (1)
  1. MIDOL [Suspect]
     Indication: HEADACHE
     Route: 048

REACTIONS (1)
  - BROMOSULPHTHALEIN TEST ABNORMAL [None]
